FAERS Safety Report 10036418 (Version 2)
Quarter: 2014Q1

REPORT INFORMATION
  Report Type: Spontaneous
  Country: US (occurrence: US)
  Receive Date: 20140325
  Receipt Date: 20140325
  Transmission Date: 20141002
  Serious: Yes (Other)
  Sender: FDA-Public Use
  Company Number: US-GE HEALTHCARE MEDICAL DIAGNOSTICS-OSCN-PR-0902S-0111

PATIENT
  Age: 63 Year
  Sex: Male

DRUGS (12)
  1. OMNISCAN [Suspect]
     Indication: SARCOMA
     Route: 042
     Dates: start: 20070110, end: 20070110
  2. OMNISCAN [Suspect]
     Route: 042
     Dates: start: 20070613, end: 20070613
  3. GADOLINIUM (UNSPECIFIED) [Suspect]
     Indication: SARCOMA
     Route: 042
     Dates: start: 20040520, end: 20040520
  4. GADOLINIUM (UNSPECIFIED) [Suspect]
     Route: 042
     Dates: start: 20040708, end: 20040708
  5. GADOLINIUM (UNSPECIFIED) [Suspect]
     Route: 042
     Dates: start: 20050811, end: 20050811
  6. GADOLINIUM (UNSPECIFIED) [Suspect]
     Route: 042
     Dates: start: 20060707, end: 20060707
  7. GADOLINIUM (UNSPECIFIED) [Suspect]
     Route: 042
     Dates: start: 20061018, end: 20061018
  8. GADOLINIUM (UNSPECIFIED) [Suspect]
     Route: 042
     Dates: start: 20070323, end: 20070323
  9. MAGNEVIST [Suspect]
     Indication: LIPOSARCOMA
     Route: 042
     Dates: start: 20050201, end: 20050201
  10. PREDNISONE [Concomitant]
     Indication: PRODUCT USED FOR UNKNOWN INDICATION
     Dates: start: 2007, end: 2008
  11. PROCRIT [Concomitant]
     Indication: PRODUCT USED FOR UNKNOWN INDICATION
     Dates: start: 2005, end: 2007
  12. EPOEGEN [Concomitant]
     Indication: PRODUCT USED FOR UNKNOWN INDICATION
     Dates: start: 2004, end: 2007

REACTIONS (1)
  - Nephrogenic systemic fibrosis [Not Recovered/Not Resolved]
